FAERS Safety Report 21157796 (Version 1)
Quarter: 2022Q3

REPORT INFORMATION
  Report Type: Report from Study
  Country: US (occurrence: US)
  Receive Date: 20220801
  Receipt Date: 20220801
  Transmission Date: 20221026
  Serious: Yes (Hospitalization, Other)
  Sender: FDA-Public Use
  Company Number: US-TAKEDA-2022TUS050634

PATIENT
  Sex: Male

DRUGS (14)
  1. IDURSULFASE [Suspect]
     Active Substance: IDURSULFASE
     Indication: Mucopolysaccharidosis II
     Dosage: 0.6 MILLIGRAM/KILOGRAM, 1/WEEK
     Route: 042
     Dates: start: 20070619
  2. IDURSULFASE [Suspect]
     Active Substance: IDURSULFASE
     Dosage: 0.5 MILLIGRAM/KILOGRAM
     Route: 042
     Dates: start: 20120802
  3. PULMICORT TURBUHALER [Concomitant]
     Active Substance: BUDESONIDE
     Indication: Antiinflammatory therapy
     Dosage: UNK
     Route: 055
  4. NASONEX [Concomitant]
     Active Substance: MOMETASONE FUROATE
     Indication: Nasal congestion
     Dosage: UNK
     Route: 065
     Dates: start: 200705
  5. DIPHENHYDRAMINE [Concomitant]
     Active Substance: DIPHENHYDRAMINE
     Indication: Premedication
     Dosage: UNK
     Route: 048
     Dates: start: 20070619
  6. EMLA [Concomitant]
     Active Substance: LIDOCAINE\PRILOCAINE
     Indication: Pain
     Dosage: UNK
     Route: 062
     Dates: start: 20070619
  7. ACETAMINOPHEN [Concomitant]
     Active Substance: ACETAMINOPHEN
     Indication: Premedication
     Dosage: UNK
     Route: 048
     Dates: start: 20070619
  8. BENADRYL [Concomitant]
     Active Substance: DIPHENHYDRAMINE HYDROCHLORIDE
     Indication: Hypersensitivity
     Dosage: UNK
     Route: 048
     Dates: start: 20070717, end: 20070717
  9. SOLU-MEDROL [Concomitant]
     Active Substance: METHYLPREDNISOLONE SODIUM SUCCINATE
     Indication: Hypersensitivity
     Dosage: UNK
     Route: 042
     Dates: start: 20070717, end: 20070717
  10. PREDNISONE [Concomitant]
     Active Substance: PREDNISONE
     Indication: Hypersensitivity
     Dosage: UNK
     Route: 048
     Dates: start: 20070724, end: 20070925
  11. SINGULAIR [Concomitant]
     Active Substance: MONTELUKAST SODIUM
     Indication: Swelling
     Dosage: UNK
     Route: 055
     Dates: start: 20081014
  12. SINGULAIR [Concomitant]
     Active Substance: MONTELUKAST SODIUM
     Indication: Inflammation
  13. CHLORAL HYDRATE [Concomitant]
     Active Substance: CHLORAL HYDRATE
     Indication: Agitation
     Dosage: UNK
     Route: 048
     Dates: start: 2011
  14. ALBUTEROL [Concomitant]
     Active Substance: ALBUTEROL
     Indication: Asthma
     Dosage: UNK
     Route: 055
     Dates: start: 20120806

REACTIONS (2)
  - Cervical spinal stenosis [Recovered/Resolved]
  - Cervical cord compression [Recovered/Resolved]

NARRATIVE: CASE EVENT DATE: 20100707
